FAERS Safety Report 8592571-9 (Version None)
Quarter: 2012Q3

REPORT INFORMATION
  Report Type: 
  Country: None (occurrence: None)
  Receive Date: 20120814
  Receipt Date: 20120808
  Transmission Date: 20120928
  Serious: Yes (Other)
  Sender: FDA-Public Use
  Company Number: JP-VERTEX PHARMACEUTICALS INC.-AE-2012-011961

PATIENT
  Age: 67 Year
  Sex: Male

DRUGS (7)
  1. TELAVIC (TELAPREVIR) [Suspect]
     Route: 048
     Dates: start: 20120704
  2. RIBAVIRIN [Concomitant]
     Indication: HEPATITIS C
     Route: 048
     Dates: start: 20120614, end: 20120628
  3. TELAVIC (TELAPREVIR) [Suspect]
     Indication: HEPATITIS C
     Route: 048
     Dates: start: 20120614, end: 20120618
  4. TELAVIC (TELAPREVIR) [Suspect]
     Route: 048
     Dates: start: 20120623, end: 20120703
  5. PEGINTERFERON ALFA-2B [Concomitant]
     Indication: HEPATITIS C
     Route: 058
     Dates: start: 20120614
  6. RIBAVIRIN [Concomitant]
     Route: 048
     Dates: start: 20120712
  7. RIBAVIRIN [Concomitant]
     Route: 048
     Dates: start: 20120629, end: 20120711

REACTIONS (1)
  - RETINOPATHY [None]
